FAERS Safety Report 10004971 (Version 1)
Quarter: 2014Q1

REPORT INFORMATION
  Report Type: Spontaneous
  Country: US (occurrence: US)
  Receive Date: 20140312
  Receipt Date: 20140312
  Transmission Date: 20141002
  Serious: No
  Sender: FDA-Public Use
  Company Number: US-INCYTE CORPORATION-2013IN003101

PATIENT
  Age: 84 Year
  Sex: Male

DRUGS (10)
  1. JAKAFI [Suspect]
     Indication: MYELOFIBROSIS
     Dosage: 20 MG, BID
     Route: 048
     Dates: start: 20130601
  2. DANAZOL [Concomitant]
  3. TOPROL [Concomitant]
  4. PRAVASTATIN [Concomitant]
  5. FENOFIBRATE [Concomitant]
  6. ZYRTEC [Concomitant]
  7. NEXIUM                             /01479302/ [Concomitant]
  8. ASPIRIN 81 MG [Concomitant]
  9. VALIUM [Concomitant]
  10. NASONEX [Concomitant]

REACTIONS (4)
  - Asthenia [Unknown]
  - Dyspnoea [Unknown]
  - Anaemia [Unknown]
  - Drug administration error [Unknown]
